FAERS Safety Report 6091160-8 (Version None)
Quarter: 2009Q1

REPORT INFORMATION
  Report Type: 
  Country: None (occurrence: None)
  Receive Date: 20090225
  Receipt Date: 20090212
  Transmission Date: 20090719
  Serious: Yes (Other)
  Sender: FDA-Public Use
  Company Number: JP-PFIZER INC-2009172764

PATIENT

DRUGS (2)
  1. SILDENAFIL CITRATE [Suspect]
     Indication: PULMONARY HYPERTENSION
  2. BOSENTAN [Concomitant]

REACTIONS (2)
  - EOSINOPHILIC PNEUMONIA [None]
  - THYROIDITIS [None]
